FAERS Safety Report 5676922-0 (Version None)
Quarter: 2008Q1

REPORT INFORMATION
  Report Type: 
  Country: None (occurrence: None)
  Receive Date: 20080324
  Receipt Date: 20080312
  Transmission Date: 20080703
  Serious: Yes (Life-Threatening, Hospitalization)
  Sender: FDA-Public Use
  Company Number: GB-BRISTOL-MYERS SQUIBB COMPANY-14112924

PATIENT
  Age: 50 Year
  Sex: Female

DRUGS (6)
  1. TRAZODONE HCL [Suspect]
     Indication: DEPRESSION
     Route: 048
     Dates: start: 20020101
  2. CETIRIZINE HCL [Concomitant]
     Dates: start: 20060206
  3. FERSAMAL [Concomitant]
  4. LACTULOSE [Concomitant]
     Dates: start: 20000101
  5. PARACETAMOL [Concomitant]
  6. RISPERIDONE [Concomitant]
     Dates: start: 20061201

REACTIONS (3)
  - AGRANULOCYTOSIS [None]
  - NEUTROPHIL COUNT DECREASED [None]
  - SEPSIS [None]
